FAERS Safety Report 11472472 (Version 2)
Quarter: 2015Q4

REPORT INFORMATION
  Report Type: Spontaneous
  Country: US (occurrence: US)
  Receive Date: 20150908
  Receipt Date: 20151105
  Transmission Date: 20160304
  Serious: No
  Sender: FDA-Public Use
  Company Number: GXBR2015US001855

PATIENT
  Age: 70 Year
  Sex: Female

DRUGS (3)
  1. SULFACID [Suspect]
     Active Substance: SULFACETAMIDE SODIUM
     Indication: ROSACEA
     Route: 061
  2. MINOCYCLINE\MINOCYCLINE HYDROCHLORIDE [Suspect]
     Active Substance: MINOCYCLINE\MINOCYCLINE HYDROCHLORIDE
     Indication: ROSACEA
     Dosage: UNK DF, UNK
     Route: 048
  3. CLINDAMYCIN [Suspect]
     Active Substance: CLINDAMYCIN\CLINDAMYCIN PHOSPHATE
     Indication: ROSACEA
     Dosage: UNK DF, UNK
     Route: 061

REACTIONS (2)
  - Rosacea [Not Recovered/Not Resolved]
  - Furuncle [Not Recovered/Not Resolved]
